FAERS Safety Report 5176020-9 (Version None)
Quarter: 2006Q4

REPORT INFORMATION
  Report Type: 
  Country: None (occurrence: None)
  Receive Date: 20061215
  Receipt Date: 20060705
  Transmission Date: 20070319
  Serious: No
  Sender: FDA-Public Use
  Company Number: US-AMGEN-KDL185306

PATIENT
  Sex: Female

DRUGS (2)
  1. ENBREL [Suspect]
     Indication: PSORIATIC ARTHROPATHY
     Route: 058
     Dates: start: 20060501
  2. NEORAL [Concomitant]
     Route: 048
     Dates: start: 20060401

REACTIONS (4)
  - DIZZINESS [None]
  - INJECTION SITE PAIN [None]
  - JOINT SWELLING [None]
  - OEDEMA PERIPHERAL [None]
